FAERS Safety Report 4379845-2 (Version None)
Quarter: 2004Q2

REPORT INFORMATION
  Report Type: 
  Country: None (occurrence: None)
  Receive Date: 20040614
  Receipt Date: 20040220
  Transmission Date: 20050107
  Serious: Yes (Hospitalization)
  Sender: FDA-Public Use
  Company Number: RB-530-2004

PATIENT
  Age: 26 Year
  Sex: Male

DRUGS (5)
  1. BUPRENORPHINE HCL [Suspect]
     Indication: DRUG DEPENDENCE
     Dosage: 2 MG/0.4 MG/1.8 MG  SL
     Route: 060
     Dates: start: 20040205, end: 20040209
  2. BUPRENORPHINE HCL [Suspect]
     Indication: DRUG DEPENDENCE
     Dosage: 2 MG/0.4 MG/1.8 MG  SL
     Route: 060
     Dates: start: 20040210
  3. MIRTAZAPINE [Concomitant]
  4. HYDROXYZINE HCL [Concomitant]
  5. CYAMEMAZINE [Concomitant]

REACTIONS (1)
  - PANCREATITIS [None]
